FAERS Safety Report 4692354-6 (Version None)
Quarter: 2005Q2

REPORT INFORMATION
  Report Type: 
  Country: None (occurrence: None)
  Receive Date: 20050616
  Receipt Date: 20050613
  Transmission Date: 20051028
  Serious: Yes (Death, Hospitalization)
  Sender: FDA-Public Use
  Company Number: PHHO2005CO09377

PATIENT
  Sex: Male

DRUGS (2)
  1. DIOVAN [Suspect]
     Indication: HYPERTENSION
     Dosage: 80 MG, QD
     Route: 048
     Dates: start: 20050531
  2. ZELMAC / HTF 919A [Suspect]
     Indication: IRRITABLE BOWEL SYNDROME
     Dosage: TWICE PER DAY
     Route: 048
     Dates: start: 20040613

REACTIONS (3)
  - MULTI-ORGAN FAILURE [None]
  - OESOPHAGEAL CARCINOMA [None]
  - OESOPHAGECTOMY [None]
